FAERS Safety Report 5696451-8 (Version None)
Quarter: 2008Q2

REPORT INFORMATION
  Report Type: 
  Country: None (occurrence: None)
  Receive Date: 20080408
  Receipt Date: 20080404
  Transmission Date: 20081010
  Serious: Yes (Life-Threatening)
  Sender: FDA-Public Use
  Company Number: ES-BOEHRINGER INGELHEIM GMBH, GERMANY-2008-BP-05310YA

PATIENT
  Age: 60 Year

DRUGS (1)
  1. OMNIC OCAS ORODISPERSABLE [Suspect]
     Indication: BENIGN PROSTATIC HYPERPLASIA
     Route: 048
     Dates: start: 20060101, end: 20080101

REACTIONS (1)
  - TONGUE OEDEMA [None]
